FAERS Safety Report 9316451 (Version 1)
Quarter: 2013Q2

REPORT INFORMATION
  Report Type: Spontaneous
  Country: US (occurrence: None)
  Receive Date: 20130522
  Receipt Date: 20130522
  Transmission Date: 20140414
  Serious: Yes (Other)
  Sender: FDA-Public Use
  Company Number: AUR-APL-2013-04134

PATIENT
  Sex: Male

DRUGS (4)
  1. OXYCODONE (OXYCODONE) [Suspect]
  2. CELEBREX (CELECOXIB) [Suspect]
  3. TRAMADOL HCL [Suspect]
  4. OXYCONTIN (OXYCODONE HYDROCHLORIDE) [Suspect]

REACTIONS (2)
  - Fall [None]
  - Rash [None]
